FAERS Safety Report 8977792 (Version 8)
Quarter: 2014Q3

REPORT INFORMATION
  Report Type: Report from Study
  Country: BG (occurrence: BG)
  Receive Date: 20121219
  Receipt Date: 20140718
  Transmission Date: 20150326
  Serious: Yes (Death, Life-Threatening, Hospitalization, Disabling)
  Sender: FDA-Public Use
  Company Number: BG-CELGENEUS-022-21880-12121590

PATIENT
  Age: 79 Year
  Sex: Male
  Weight: 70 kg

DRUGS (17)
  1. ZOMETA [Concomitant]
     Active Substance: ZOLEDRONIC ACID
     Indication: DRUG THERAPY
     Dosage: 4/5 MG/ML
     Route: 041
     Dates: start: 20110331
  2. DEXAMETHASONE. [Suspect]
     Active Substance: DEXAMETHASONE
     Dosage: 40 MILLIGRAM
     Route: 065
     Dates: start: 20121226, end: 20130102
  3. ASPIRIN PROTECT [Concomitant]
     Active Substance: ASPIRIN
     Indication: ANTIPLATELET THERAPY
  4. NIZATIDINE. [Concomitant]
     Active Substance: NIZATIDINE
     Indication: PROPHYLAXIS
     Dosage: 100 MILLIGRAM
     Route: 041
     Dates: start: 20121212, end: 20121221
  5. ASPIRIN PROTECT [Concomitant]
     Active Substance: ASPIRIN
     Indication: ANTICOAGULANT THERAPY
     Dosage: 100 MILLIGRAM
     Route: 048
     Dates: start: 20110403, end: 20121211
  6. CHLORTHALIDONE. [Concomitant]
     Active Substance: CHLORTHALIDONE
     Indication: HYPERTENSION
     Dosage: 100 MILLIGRAM
     Route: 048
     Dates: start: 20110620, end: 20130130
  7. VERAPAMIL [Concomitant]
     Active Substance: VERAPAMIL HYDROCHLORIDE
     Indication: HYPERTENSION
     Dosage: 40 MILLIGRAM
     Route: 048
     Dates: start: 20110620, end: 20130130
  8. LANSOPROL [Concomitant]
     Dosage: 15 MILLIGRAM
     Route: 048
     Dates: start: 20110403, end: 20130129
  9. TRAMAL [Concomitant]
     Active Substance: TRAMADOL
     Indication: CHEST PAIN
     Dosage: 2 MILLILITER
     Route: 041
     Dates: start: 20121218, end: 20121220
  10. KALINOR [Concomitant]
     Active Substance: POTASSIUM CITRATE
     Dosage: 1 GRAM
     Route: 048
     Dates: start: 20121222
  11. REVLIMID [Suspect]
     Active Substance: LENALIDOMIDE
     Indication: PLASMA CELL MYELOMA RECURRENT
     Dosage: DAY 1-21
     Route: 048
     Dates: start: 20110404, end: 20110424
  12. REVLIMID [Suspect]
     Active Substance: LENALIDOMIDE
     Dosage: DAY 1-21
     Route: 048
     Dates: start: 20121114, end: 20121204
  13. DEXAMETHASONE. [Suspect]
     Active Substance: DEXAMETHASONE
     Dosage: 40 MILLIGRAM
     Route: 065
     Dates: start: 20130109, end: 20130109
  14. KALINOR [Concomitant]
     Active Substance: POTASSIUM CITRATE
     Indication: HYPOKALAEMIA
     Dosage: 1 GRAM
     Route: 048
     Dates: start: 20120919, end: 20121114
  15. LANSOPROL [Concomitant]
     Indication: GASTRIC PH DECREASED
     Dosage: 30 MILLIGRAM
     Route: 048
     Dates: start: 20110403, end: 20130129
  16. DEXAMETHASONE. [Suspect]
     Active Substance: DEXAMETHASONE
     Indication: PLASMA CELL MYELOMA RECURRENT
     Dosage: 40 MILLIGRAM
     Route: 065
     Dates: start: 20110404, end: 20110425
  17. DAKTARIN [Concomitant]
     Active Substance: MICONAZOLE NITRATE
     Indication: OROPHARYNGEAL CANDIDIASIS
     Dosage: 40 MILLIGRAM
     Route: 061
     Dates: start: 20121212, end: 20121221

REACTIONS (2)
  - Bicytopenia [Fatal]
  - Myelodysplastic syndrome [Fatal]

NARRATIVE: CASE EVENT DATE: 20121212
